FAERS Safety Report 8293226-0 (Version None)
Quarter: 2012Q2

REPORT INFORMATION
  Report Type: 
  Country: None (occurrence: None)
  Receive Date: 20120417
  Receipt Date: 20120207
  Transmission Date: 20120825
  Serious: No
  Sender: FDA-Public Use
  Company Number: US-ASTRAZENECA-2012SE08592

PATIENT
  Age: 47 Year
  Sex: Male

DRUGS (14)
  1. METOPROLOL TARTRATE [Suspect]
     Route: 048
  2. LASIX [Concomitant]
     Dosage: HALF-ONE TABLET EVERY DAY
     Route: 048
  3. CYANOCOBALAMIN [Concomitant]
     Dosage: 1000 MCG/ML EVERY MONTH
     Route: 030
  4. POTASSIUM CHLORIDE [Concomitant]
     Route: 048
  5. ASPIRIN [Concomitant]
     Route: 048
  6. PENICILLIN V POTASSIUM [Concomitant]
     Route: 048
  7. VERAPAMIL [Concomitant]
     Route: 048
  8. NEXIUM [Suspect]
     Route: 048
  9. OMEPRAZOLE [Suspect]
     Route: 048
  10. OMEPRAZOLE [Suspect]
     Route: 048
  11. TRAMADOL HCL [Concomitant]
     Route: 048
  12. LISINOPRIL [Suspect]
     Route: 048
  13. IPRATROPIUM BROMIDE [Concomitant]
     Route: 055
  14. DULCOLAX [Concomitant]
     Route: 048

REACTIONS (4)
  - HYPERTROPHIC CARDIOMYOPATHY [None]
  - DRUG HYPERSENSITIVITY [None]
  - ADVERSE DRUG REACTION [None]
  - DRUG EFFECT DECREASED [None]
